FAERS Safety Report 12603229 (Version 6)
Quarter: 2016Q3

REPORT INFORMATION
  Report Type: Report from Study
  Country: US (occurrence: US)
  Receive Date: 20160728
  Receipt Date: 20160920
  Transmission Date: 20161109
  Serious: Yes (Hospitalization)
  Sender: FDA-Public Use
  Company Number: US-ACTELION-A-US2016-139704

PATIENT
  Age: 64 Year
  Sex: Female

DRUGS (6)
  1. UPTRAVI [Suspect]
     Active Substance: SELEXIPAG
     Dosage: 1200 MCG, BID
     Route: 048
  2. OPSUMIT [Suspect]
     Active Substance: MACITENTAN
     Indication: PULMONARY ARTERIAL HYPERTENSION
     Dosage: 10 MG, QD
     Route: 048
     Dates: start: 20160111
  3. UPTRAVI [Suspect]
     Active Substance: SELEXIPAG
     Dosage: 200 MCG, BID
     Route: 048
     Dates: start: 20160721
  4. UPTRAVI [Suspect]
     Active Substance: SELEXIPAG
     Dosage: 800 MCG, BID
     Route: 048
  5. UPTRAVI [Suspect]
     Active Substance: SELEXIPAG
     Indication: PULMONARY ARTERIAL HYPERTENSION
     Dosage: 600 MCG, BID
     Route: 048
  6. ADCIRCA [Concomitant]
     Active Substance: TADALAFIL

REACTIONS (11)
  - Pallor [Unknown]
  - Abdominal discomfort [Unknown]
  - Fall [Unknown]
  - Skin abrasion [Unknown]
  - Myalgia [Unknown]
  - Pain [Unknown]
  - Atrial fibrillation [Unknown]
  - Pleural effusion [Unknown]
  - Fatigue [Unknown]
  - Influenza like illness [Unknown]
  - Hypotension [Unknown]
